FAERS Safety Report 7063027-X (Version None)
Quarter: 2010Q4

REPORT INFORMATION
  Report Type: 
  Country: None (occurrence: None)
  Receive Date: 20101026
  Receipt Date: 20100415
  Transmission Date: 20110411
  Serious: No
  Sender: FDA-Public Use
  Company Number: US-PFIZER INC-2010048084

PATIENT
  Sex: Female

DRUGS (5)
  1. LIPITOR [Suspect]
     Indication: BLOOD CHOLESTEROL INCREASED
     Dosage: 10 MG, 1X/DAY
     Route: 048
  2. ACETYLSALICYLIC ACID [Concomitant]
     Dosage: TWO DAILY IN THE EVENING
     Route: 048
  3. CALCIUM [Concomitant]
     Dosage: UNK
     Route: 048
  4. VITAMIN D [Concomitant]
     Dosage: UNK
     Route: 048
  5. FISH OIL [Concomitant]
     Dosage: UNK
     Route: 048

REACTIONS (1)
  - TRIGGER FINGER [None]
